FAERS Safety Report 7701897-X (Version None)
Quarter: 2011Q3

REPORT INFORMATION
  Report Type: 
  Country: None (occurrence: None)
  Receive Date: 20110822
  Receipt Date: 20110811
  Transmission Date: 20111222
  Serious: Yes (Other)
  Sender: FDA-Public Use
  Company Number: NL-BAXTER-2011BH025662

PATIENT
  Age: 56 Year
  Sex: Female

DRUGS (8)
  1. GAMMAGARD LIQUID [Suspect]
     Route: 042
     Dates: start: 20090727, end: 20090826
  2. GAMMAGARD LIQUID [Suspect]
     Route: 042
     Dates: start: 20110715
  3. GAMMAGARD LIQUID [Suspect]
     Route: 042
     Dates: start: 20070821, end: 20090712
  4. GAMMAGARD LIQUID [Suspect]
     Route: 042
     Dates: start: 20090827, end: 20091117
  5. GAMMAGARD LIQUID [Suspect]
     Route: 042
     Dates: start: 20091123, end: 20100202
  6. GAMMAGARD LIQUID [Suspect]
     Indication: MULTIFOCAL MOTOR NEUROPATHY
     Route: 042
     Dates: start: 20061006, end: 20070820
  7. GAMMAGARD LIQUID [Suspect]
     Route: 042
     Dates: start: 20110721
  8. GAMMAGARD LIQUID [Suspect]
     Route: 042
     Dates: start: 20100202

REACTIONS (1)
  - SKIN BACTERIAL INFECTION [None]
